FAERS Safety Report 9422193 (Version 3)
Quarter: 2013Q3

REPORT INFORMATION
  Report Type: Spontaneous
  Country: AU (occurrence: AU)
  Receive Date: 20130726
  Receipt Date: 20130830
  Transmission Date: 20140515
  Serious: Yes (Hospitalization, Other)
  Sender: FDA-Public Use
  Company Number: AU-AMGEN-AUSSP2013051270

PATIENT
  Age: 64 Year
  Sex: Female

DRUGS (4)
  1. PROLIA [Suspect]
     Indication: OSTEOPOROSIS POSTMENOPAUSAL
     Dosage: 60 MG, UNK
     Route: 058
     Dates: start: 201209
  2. VITAMIN B12                        /00056201/ [Concomitant]
     Indication: PERNICIOUS ANAEMIA
  3. SPIRIVA [Concomitant]
  4. PULMICORT [Concomitant]

REACTIONS (9)
  - Abasia [Recovering/Resolving]
  - Wheelchair user [Unknown]
  - Walking aid user [Unknown]
  - General physical health deterioration [Unknown]
  - Muscular weakness [Recovering/Resolving]
  - General physical condition abnormal [Unknown]
  - Weight decreased [Unknown]
  - Neuralgia [Recovering/Resolving]
  - Pain in extremity [Recovering/Resolving]
